FAERS Safety Report 10461728 (Version 1)
Quarter: 2014Q3

REPORT INFORMATION
  Report Type: Spontaneous
  Country: US (occurrence: None)
  Receive Date: 20140917
  Receipt Date: 20140917
  Transmission Date: 20150326
  Serious: No
  Sender: FDA-Public Use
  Company Number: None

PATIENT
  Age: 54 Year
  Sex: Female

DRUGS (10)
  1. XCOMIN [Concomitant]
  2. AMPYRA [Suspect]
     Active Substance: DALFAMPRIDINE
     Indication: MULTIPLE SCLEROSIS
     Dosage: AMPYRA ER 10MG, 1 EVERY 12 HOURS, ORALLY
     Route: 048
     Dates: start: 20120227
  3. MODAFINIL. [Concomitant]
     Active Substance: MODAFINIL
  4. ACYCLOVIR. [Concomitant]
     Active Substance: ACYCLOVIR
  5. HYDROCORTISONE. [Concomitant]
     Active Substance: HYDROCORTISONE
  6. VITAMIN D3 [Concomitant]
     Active Substance: CHOLECALCIFEROL
  7. CARBAMAZOPINE [Concomitant]
  8. BACLOFEN. [Concomitant]
     Active Substance: BACLOFEN
  9. FLUCONAZOLE. [Concomitant]
     Active Substance: FLUCONAZOLE
  10. SORTRALINO [Concomitant]

REACTIONS (2)
  - Citrobacter test positive [None]
  - Urinary tract infection [None]

NARRATIVE: CASE EVENT DATE: 20140716
